FAERS Safety Report 5140748-7 (Version None)
Quarter: 2006Q4

REPORT INFORMATION
  Report Type: 
  Country: None (occurrence: None)
  Receive Date: 20061031
  Receipt Date: 20061024
  Transmission Date: 20070319
  Serious: Yes (Hospitalization)
  Sender: FDA-Public Use
  Company Number: DE-ABBOTT-06P-062-0348092-00

PATIENT
  Sex: Male

DRUGS (11)
  1. KLACID I.V. [Suspect]
     Indication: PNEUMONIA
     Route: 042
  2. WARFARIN SODIUM [Suspect]
     Indication: THROMBOSIS
  3. WARFARIN SODIUM [Suspect]
     Indication: PULMONARY EMBOLISM
  4. PHENPROCOUMON [Suspect]
     Indication: THROMBOSIS
  5. PHENPROCOUMON [Suspect]
     Indication: PULMONARY EMBOLISM
  6. PANTOZOLE [Suspect]
     Indication: DRUG USE FOR UNKNOWN INDICATION
  7. MOXIFLOXACIN HYDROCHLORIDE [Suspect]
     Indication: PNEUMONIA
  8. CITALOPRAM HYDROBROMIDE [Suspect]
     Indication: DRUG USE FOR UNKNOWN INDICATION
  9. METFORMIN HCL [Suspect]
     Indication: DRUG USE FOR UNKNOWN INDICATION
  10. CEFUROXIME [Suspect]
     Indication: PNEUMONIA
  11. DOXEPIN HCL [Suspect]
     Indication: DRUG USE FOR UNKNOWN INDICATION

REACTIONS (4)
  - ANTIPHOSPHOLIPID SYNDROME [None]
  - COAGULOPATHY [None]
  - INTERNATIONAL NORMALISED RATIO INCREASED [None]
  - PROTHROMBIN TIME PROLONGED [None]
